FAERS Safety Report 9182650 (Version 1)
Quarter: 2012Q4

REPORT INFORMATION
  Report Type: 
  Country: CA (occurrence: CA)
  Receive Date: 20121030
  Receipt Date: 20121030
  Transmission Date: 20130627
  Serious: Yes (Hospitalization)
  Sender: FDA-Public Use
  Company Number: CA-B.I. PHARMACEUTICALS,INC./RIDGEFIELD-2012-CN-02186CN

PATIENT
  Sex: Male

DRUGS (6)
  1. PRADAX [Suspect]
     Dosage: 220 mg
     Route: 048
  2. DILANTIN [Suspect]
     Dosage: 200 mg
     Route: 065
  3. ASA [Concomitant]
  4. AVAPRO [Concomitant]
  5. HCTZ [Concomitant]
  6. SYNTHROID [Concomitant]

REACTIONS (1)
  - Cerebrovascular accident [Unknown]
